FAERS Safety Report 5604750-0 (Version None)
Quarter: 2008Q1

REPORT INFORMATION
  Report Type: 
  Country: None (occurrence: None)
  Receive Date: 20080128
  Receipt Date: 20080123
  Transmission Date: 20080703
  Serious: Yes (Other)
  Sender: FDA-Public Use
  Company Number: PHRM2008FR00688

PATIENT

DRUGS (3)
  1. TEGRETOL [Suspect]
     Dosage: 400 MG, BID
     Route: 048
  2. ANAFRANIL [Suspect]
  3. ANXIOLYTICS [Concomitant]

REACTIONS (1)
  - BLOOD CREATINE PHOSPHOKINASE INCREASED [None]
